FAERS Safety Report 9448222 (Version 1)
Quarter: 2013Q3

REPORT INFORMATION
  Report Type: Spontaneous
  Country: US (occurrence: None)
  Receive Date: 20130807
  Receipt Date: 20130807
  Transmission Date: 20140515
  Serious: No
  Sender: FDA-Public Use
  Company Number: None

PATIENT
  Age: 33 Year
  Sex: Female

DRUGS (3)
  1. INVEGA SUSTENNA [Suspect]
     Indication: MENTAL DISORDER
     Dates: start: 001305
  2. INVEGA SUSTENNA [Suspect]
     Indication: SCHIZOAFFECTIVE DISORDER
     Dates: start: 001305
  3. SEROQUEL [Concomitant]

REACTIONS (3)
  - Feeling abnormal [None]
  - Anhedonia [None]
  - Suicidal ideation [None]
